FAERS Safety Report 12650347 (Version 1)
Quarter: 2016Q3

REPORT INFORMATION
  Report Type: Other
  Country: GR (occurrence: GR)
  Receive Date: 20160814
  Receipt Date: 20160814
  Transmission Date: 20161109
  Serious: No
  Sender: FDA-Public Use
  Company Number: GR-WARNER CHILCOTT, LLC-1056301

PATIENT
  Age: 20 Year
  Sex: Male

DRUGS (1)
  1. ASACOL [Suspect]
     Active Substance: MESALAMINE
     Indication: CROHN^S DISEASE
     Route: 065

REACTIONS (8)
  - Langerhans^ cell histiocytosis [Recovered/Resolved]
  - Organising pneumonia [Recovered/Resolved]
  - Nausea [Recovered/Resolved]
  - Pulmonary granuloma [Recovered/Resolved]
  - Dehydration [Recovered/Resolved]
  - Pulmonary mass [Recovered/Resolved]
  - Vomiting [Recovered/Resolved]
  - Pyrexia [Recovered/Resolved]
